FAERS Safety Report 19730595 (Version 1)
Quarter: 2021Q3

REPORT INFORMATION
  Report Type: Spontaneous
  Country: RU (occurrence: RU)
  Receive Date: 20210820
  Receipt Date: 20210820
  Transmission Date: 20211014
  Serious: Yes (Hospitalization, Other)
  Sender: FDA-Public Use
  Company Number: RU-ASTRAZENECA-2021A690660

PATIENT
  Age: 61 Year
  Sex: Male
  Weight: 98 kg

DRUGS (8)
  1. NETAKIMAB. [Suspect]
     Active Substance: NETAKIMAB
     Indication: PSORIATIC ARTHROPATHY
     Route: 058
     Dates: start: 20210406, end: 20210406
  2. OMEPRAZOLE. [Suspect]
     Active Substance: OMEPRAZOLE
     Indication: ADRENOCORTICAL STEROID THERAPY
     Route: 065
     Dates: start: 20180315
  3. METIPRED [Suspect]
     Active Substance: METHYLPREDNISOLONE
     Indication: PSORIATIC ARTHROPATHY
     Route: 048
     Dates: start: 20180315
  4. VITAMIN D 2000 [Suspect]
     Active Substance: VITAMIN D NOS
     Indication: ADRENOCORTICAL STEROID THERAPY
     Route: 065
     Dates: start: 20180315
  5. METHOTREXATE. [Suspect]
     Active Substance: METHOTREXATE
     Indication: PSORIATIC ARTHROPATHY
     Route: 065
     Dates: start: 20180315
  6. CALCIUM SANDOZ FORTE [Suspect]
     Active Substance: CALCIUM CARBONATE\CALCIUM LACTATE GLUCONATE
     Indication: ADRENOCORTICAL STEROID THERAPY
     Route: 065
     Dates: start: 20180315
  7. ARCOXIA [Suspect]
     Active Substance: ETORICOXIB
     Indication: PSORIATIC ARTHROPATHY
     Route: 048
     Dates: start: 20180315
  8. FOLIC ACID. [Suspect]
     Active Substance: FOLIC ACID
     Route: 065
     Dates: start: 20180315

REACTIONS (6)
  - Arteriosclerosis [Unknown]
  - Asthenia [Recovering/Resolving]
  - Myasthenic syndrome [Unknown]
  - Bulbar palsy [Recovering/Resolving]
  - Cerebral ischaemia [Recovering/Resolving]
  - Radiculopathy [Recovering/Resolving]

NARRATIVE: CASE EVENT DATE: 2021
